FAERS Safety Report 8903447 (Version 2)
Quarter: 2012Q4

REPORT INFORMATION
  Report Type: 
  Country: US (occurrence: US)
  Receive Date: 20121113
  Receipt Date: 20121119
  Transmission Date: 20130627
  Serious: Yes (Death, Other)
  Sender: FDA-Public Use
  Company Number: PHHY2012US104347

PATIENT
  Age: 91 Year
  Sex: Female

DRUGS (4)
  1. ENOXAPARIN SODIUM [Suspect]
     Indication: PROPHYLAXIS
     Dosage: 30 mg, day
     Route: 058
  2. CLINDAMYCIN [Concomitant]
     Indication: LYMPHADENITIS
  3. GENTAMICIN [Concomitant]
     Indication: LYMPHADENITIS
  4. CEFEPIME [Concomitant]
     Indication: LYMPHADENITIS

REACTIONS (4)
  - Death [Fatal]
  - Skin necrosis [Recovering/Resolving]
  - Skin lesion [Recovering/Resolving]
  - Erythema [Recovering/Resolving]
